FAERS Safety Report 9051075 (Version 1)
Quarter: 2013Q1

REPORT INFORMATION
  Report Type: Spontaneous
  Country: US (occurrence: US)
  Receive Date: 20130206
  Receipt Date: 20130206
  Transmission Date: 20140127
  Serious: Yes (Other)
  Sender: FDA-Public Use
  Company Number: US-ELI_LILLY_AND_COMPANY-US201108002458

PATIENT
  Sex: Female

DRUGS (9)
  1. FORTEO [Suspect]
     Indication: OSTEOPOROSIS
     Dosage: 20 UG, QD
     Route: 065
     Dates: start: 20100901, end: 20110728
  2. FORTEO [Suspect]
     Dosage: 20 UG, QD
     Dates: end: 201208
  3. CALCIUM [Concomitant]
  4. VITAMIN D [Concomitant]
  5. MAGNESIUM [Concomitant]
  6. FISH OIL [Concomitant]
  7. ONE-A-DAY                          /01719501/ [Concomitant]
  8. VITAMIN C [Concomitant]
  9. ZYRTEC [Concomitant]
     Indication: HYPERSENSITIVITY

REACTIONS (4)
  - Breast cancer [Unknown]
  - Inguinal hernia [Unknown]
  - Abdominal discomfort [Unknown]
  - Diarrhoea [Recovering/Resolving]
